FAERS Safety Report 6074691-6 (Version None)
Quarter: 2009Q1

REPORT INFORMATION
  Report Type: 
  Country: None (occurrence: None)
  Receive Date: 20090209
  Receipt Date: 20090209
  Transmission Date: 20090719
  Serious: Yes (Hospitalization, Other)
  Sender: FDA-Public Use
  Company Number: None

PATIENT
  Age: 76 Year
  Sex: Male
  Weight: 52.6173 kg

DRUGS (3)
  1. FENTANYL TRANSDERMAL SYSTEM SANDOZ [Suspect]
     Indication: SPINAL DISORDER
     Dosage: 50 MCG/H FOR 72 HRS PATCH
     Dates: start: 20070329
  2. FENTANYL TRANSDERMAL SYSTEM SANDOZ [Suspect]
     Indication: SURGERY
     Dosage: 50 MCG/H FOR 72 HRS PATCH
     Dates: start: 20070329
  3. FENTANYL TRANSDERMAL SYSTEM SANDOZ [Suspect]

REACTIONS (5)
  - ANOREXIA [None]
  - BURNING SENSATION [None]
  - DEVICE FAILURE [None]
  - DRUG EFFECT DECREASED [None]
  - ERYTHEMA [None]
